FAERS Safety Report 12477224 (Version 1)
Quarter: 2016Q2

REPORT INFORMATION
  Report Type: Spontaneous
  Country: NO (occurrence: NO)
  Receive Date: 20160617
  Receipt Date: 20160617
  Transmission Date: 20160815
  Serious: Yes (Hospitalization)
  Sender: FDA-Public Use
  Company Number: NO-SA-2016SA110600

PATIENT
  Age: 40 Year
  Sex: Female

DRUGS (6)
  1. LEMTRADA [Suspect]
     Active Substance: ALEMTUZUMAB
     Indication: MULTIPLE SCLEROSIS
     Dosage: FIRST TREATMENT INVOLVED 12 MG DAILY FOR 5 DAYS. UNKNOWN IF SHE WILL RECEIVE A SECOND TREATMENT.
     Route: 041
     Dates: start: 20151102, end: 20151106
  2. IBUX [Concomitant]
     Active Substance: IBUPROFEN
     Dates: start: 20151101, end: 20151209
  3. TYSABRI [Concomitant]
     Active Substance: NATALIZUMAB
     Indication: MULTIPLE SCLEROSIS
     Dosage: GIVEN A TOTAL OF 94 MOTHLY DOSES.
     Dates: end: 20150805
  4. SOLU-MEDROL [Concomitant]
     Active Substance: METHYLPREDNISOLONE SODIUM SUCCINATE
     Indication: MULTIPLE SCLEROSIS
     Dosage: TWO CURES, EACH LASTING FOR 3 DAYS.
     Route: 042
     Dates: start: 20150902, end: 20150904
  5. SOLU-MEDROL [Concomitant]
     Active Substance: METHYLPREDNISOLONE SODIUM SUCCINATE
     Indication: MULTIPLE SCLEROSIS
     Dosage: TWO CURES, EACH LASTING FOR 3 DAYS.
     Route: 042
     Dates: start: 20150930, end: 20151002
  6. ZOVIRAX [Concomitant]
     Active Substance: ACYCLOVIR
     Indication: MULTIPLE SCLEROSIS
     Dates: start: 20151101, end: 20151129

REACTIONS (3)
  - Acute respiratory distress syndrome [Recovered/Resolved with Sequelae]
  - Respiratory failure [Recovered/Resolved with Sequelae]
  - Pneumonia viral [Recovered/Resolved with Sequelae]

NARRATIVE: CASE EVENT DATE: 20151207
